FAERS Safety Report 7103570-8 (Version None)
Quarter: 2010Q4

REPORT INFORMATION
  Report Type: 
  Country: None (occurrence: None)
  Receive Date: 20101115
  Receipt Date: 20090908
  Transmission Date: 20110411
  Serious: No
  Sender: FDA-Public Use
  Company Number: US-KINGPHARMUSA00001-K200901110

PATIENT
  Sex: Female
  Weight: 86.168 kg

DRUGS (3)
  1. LEVOXYL [Suspect]
     Indication: BASEDOW'S DISEASE
     Dosage: 112 MCG, UNK
     Route: 048
     Dates: start: 20020101
  2. LEVOXYL [Suspect]
     Indication: HYPOTHYROIDISM
  3. CHOLESTEROL MEDICATION [Concomitant]

REACTIONS (1)
  - DYSGEUSIA [None]
